FAERS Safety Report 4462898-0 (Version None)
Quarter: 2004Q3

REPORT INFORMATION
  Report Type: 
  Country: None (occurrence: None)
  Receive Date: 20040927
  Receipt Date: 20040920
  Transmission Date: 20050211
  Serious: Yes (Life-Threatening, Hospitalization)
  Sender: FDA-Public Use
  Company Number: 2004-120353-NL

PATIENT
  Sex: Female

DRUGS (9)
  1. MIRTAZAPINE [Suspect]
  2. RAMIPRIL [Concomitant]
  3. ACETYLSALICYLIC ACID [Concomitant]
  4. HYDROCHLOROTHIAZIDE [Concomitant]
  5. ISOSORBIDE DINITRATE [Concomitant]
  6. ZOPICLONE [Concomitant]
  7. MEBEVERINE HYDROCHLORIDE [Concomitant]
  8. MOLSIDOMINE [Concomitant]
  9. PIROXICAM [Concomitant]

REACTIONS (1)
  - HYPONATRAEMIC SYNDROME [None]
